FAERS Safety Report 7470150-4 (Version None)
Quarter: 2011Q2

REPORT INFORMATION
  Report Type: 
  Country: None (occurrence: None)
  Receive Date: 20110510
  Receipt Date: 20110422
  Transmission Date: 20111010
  Serious: Yes (Hospitalization)
  Sender: FDA-Public Use
  Company Number: B0706736A

PATIENT
  Sex: Female
  Weight: 63 kg

DRUGS (6)
  1. XELODA [Suspect]
     Dosage: 3000MG PER DAY
     Route: 048
     Dates: start: 20100716, end: 20100722
  2. TYKERB [Suspect]
     Indication: BREAST CANCER
     Dosage: 1250MG PER DAY
     Route: 048
     Dates: start: 20100716, end: 20100808
  3. FUROSEMIDE [Concomitant]
     Indication: PLEURAL EFFUSION
     Route: 048
     Dates: start: 20101203, end: 20110114
  4. ZOMETA [Concomitant]
     Indication: PROPHYLAXIS
     Route: 042
     Dates: start: 20081024
  5. TYKERB [Suspect]
     Dosage: 1250MG PER DAY
     Route: 048
     Dates: start: 20100817, end: 20110113
  6. WARFARIN [Concomitant]
     Indication: THROMBOSIS
     Route: 048
     Dates: start: 20090403

REACTIONS (2)
  - COAGULOPATHY [None]
  - RENAL INFARCT [None]
